FAERS Safety Report 8175549-9 (Version None)
Quarter: 2012Q1

REPORT INFORMATION
  Report Type: 
  Country: None (occurrence: None)
  Receive Date: 20120229
  Receipt Date: 20120217
  Transmission Date: 20120608
  Serious: Yes (Hospitalization)
  Sender: FDA-Public Use
  Company Number: FR-BRISTOL-MYERS SQUIBB COMPANY-16417396

PATIENT
  Age: 82 Year
  Sex: Female

DRUGS (9)
  1. LEXOMIL [Concomitant]
  2. ASPIRIN [Concomitant]
  3. ESCITALOPRAM OXALATE [Concomitant]
  4. LANTUS [Concomitant]
  5. GLUCOPHAGE [Suspect]
     Route: 048
     Dates: end: 20111011
  6. VALSARTAN [Concomitant]
  7. VITAMIN B-12 [Concomitant]
     Dates: end: 20111011
  8. OMEPRAZOLE [Concomitant]
  9. MIRTAZAPINE [Suspect]
     Dates: end: 20111011

REACTIONS (1)
  - PANCREATITIS ACUTE [None]
